FAERS Safety Report 17917121 (Version 1)
Quarter: 2020Q2

REPORT INFORMATION
  Report Type: Spontaneous
  Country: US (occurrence: US)
  Receive Date: 20200619
  Receipt Date: 20200619
  Transmission Date: 20200714
  Serious: Yes (Other)
  Sender: FDA-Public Use
  Company Number: US-PFIZER INC-2020237849

PATIENT
  Age: 59 Year
  Sex: Female
  Weight: 83.01 kg

DRUGS (1)
  1. LYRICA [Suspect]
     Active Substance: PREGABALIN
     Indication: NEUROPATHY PERIPHERAL
     Dosage: 75 MG, 4X/DAY

REACTIONS (3)
  - Paralysis [Unknown]
  - Drug withdrawal syndrome [Unknown]
  - Cerebrovascular accident [Unknown]
